FAERS Safety Report 16785638 (Version 4)
Quarter: 2020Q1

REPORT INFORMATION
  Report Type: Spontaneous
  Country: US (occurrence: US)
  Receive Date: 20190909
  Receipt Date: 20200103
  Transmission Date: 20200409
  Serious: No
  Sender: FDA-Public Use
  Company Number: US-PFIZER INC-2019385280

PATIENT
  Age: 86 Year
  Sex: Male
  Weight: 109.77 kg

DRUGS (3)
  1. CAVERJECT [Suspect]
     Active Substance: ALPROSTADIL
     Indication: ERECTILE DYSFUNCTION
     Dosage: 40 UG, AS NEEDED (2 20MCG SHOTS AS NEEDED BY INJECTION)
  2. CAVERJECT [Suspect]
     Active Substance: ALPROSTADIL
     Dosage: UNK
  3. CAVERJECT [Suspect]
     Active Substance: ALPROSTADIL
     Dosage: 32 UG, UNK

REACTIONS (2)
  - Off label use [Unknown]
  - Drug ineffective [Unknown]
